FAERS Safety Report 23182821 (Version 3)
Quarter: 2023Q4

REPORT INFORMATION
  Report Type: Other
  Country: CN (occurrence: CN)
  Receive Date: 20231114
  Receipt Date: 20231127
  Transmission Date: 20240110
  Serious: Yes (Death, Life-Threatening, Disabling)
  Sender: FDA-Public Use
  Company Number: CN-GE HEALTHCARE-2023CSU008596

PATIENT
  Age: 75 Year
  Sex: Male
  Weight: 65 kg

DRUGS (2)
  1. OMNIPAQUE [Suspect]
     Active Substance: IOHEXOL
     Indication: Computerised tomogram
     Dosage: 35 GM, SINGLE
     Route: 040
     Dates: start: 20230922, end: 20230922
  2. OMNIPAQUE [Suspect]
     Active Substance: IOHEXOL
     Indication: Intestinal obstruction

REACTIONS (6)
  - Multiple organ dysfunction syndrome [Fatal]
  - Hypoxic-ischaemic encephalopathy [Fatal]
  - Brain stem syndrome [Fatal]
  - Anaphylactic shock [Fatal]
  - Cardio-respiratory arrest [Fatal]
  - Coma [Fatal]

NARRATIVE: CASE EVENT DATE: 20230922
